FAERS Safety Report 12699740 (Version 2)
Quarter: 2016Q4

REPORT INFORMATION
  Report Type: Report from Study
  Country: US (occurrence: US)
  Receive Date: 20160830
  Receipt Date: 20161102
  Transmission Date: 20170207
  Serious: Yes (Death, Hospitalization)
  Sender: FDA-Public Use
  Company Number: US-BAYER-2016-132571

PATIENT
  Age: 75 Year
  Sex: Female
  Weight: 54.42 kg

DRUGS (5)
  1. ADEMPAS [Suspect]
     Active Substance: RIOCIGUAT
     Indication: PULMONARY ARTERIAL HYPERTENSION
     Dosage: 2 MG, TID
     Route: 048
  2. ADEMPAS [Suspect]
     Active Substance: RIOCIGUAT
     Indication: PULMONARY ARTERIAL HYPERTENSION
     Dosage: 2.5 MG, TID
     Route: 048
  3. ADEMPAS [Suspect]
     Active Substance: RIOCIGUAT
     Indication: PULMONARY ARTERIAL HYPERTENSION
     Dosage: 0.5 MG, TID
     Route: 048
     Dates: start: 20160629
  4. ADEMPAS [Suspect]
     Active Substance: RIOCIGUAT
     Indication: PULMONARY ARTERIAL HYPERTENSION
     Dosage: 1.5 MG, TID
     Route: 048
  5. UPTRAVI [Concomitant]
     Active Substance: SELEXIPAG
     Dosage: UNK

REACTIONS (5)
  - Pulmonary hypertension [Unknown]
  - Pulmonary arterial hypertension [Fatal]
  - Oedema peripheral [Unknown]
  - Back pain [Unknown]
  - Hospitalisation [Unknown]

NARRATIVE: CASE EVENT DATE: 20160629
